FAERS Safety Report 18169350 (Version 1)
Quarter: 2020Q3

REPORT INFORMATION
  Report Type: Spontaneous
  Country: US (occurrence: US)
  Receive Date: 20200819
  Receipt Date: 20200819
  Transmission Date: 20201103
  Serious: No
  Sender: FDA-Public Use
  Company Number: US-SA-2020SA218553

PATIENT

DRUGS (2)
  1. PRALUENT [Suspect]
     Active Substance: ALIROCUMAB
     Indication: IDIOPATHIC INTRACRANIAL HYPERTENSION
     Dosage: 140 MG, QOW
     Route: 058
     Dates: start: 20200514
  2. MELOXICAM. [Concomitant]
     Active Substance: MELOXICAM
     Indication: PRODUCT USED FOR UNKNOWN INDICATION

REACTIONS (3)
  - Throat irritation [Unknown]
  - Off label use [Unknown]
  - Limb mass [Unknown]

NARRATIVE: CASE EVENT DATE: 20200514
